FAERS Safety Report 16606649 (Version 1)
Quarter: 2019Q3

REPORT INFORMATION
  Report Type: Spontaneous
  Country: US (occurrence: US)
  Receive Date: 20190722
  Receipt Date: 20190722
  Transmission Date: 20191004
  Serious: Yes (Hospitalization)
  Sender: FDA-Public Use
  Company Number: US-ROCHE-2358069

PATIENT
  Age: 35 Year
  Sex: Female

DRUGS (12)
  1. CLONAZEPAM. [Concomitant]
     Active Substance: CLONAZEPAM
  2. NAPROXEN. [Concomitant]
     Active Substance: NAPROXEN
  3. NIFEDIPINE. [Concomitant]
     Active Substance: NIFEDIPINE
  4. PULMOZYME [Suspect]
     Active Substance: DORNASE ALFA
     Indication: PRODUCT USED FOR UNKNOWN INDICATION
     Route: 050
  5. DOXYCLINE [DOXYCYCLINE] [Suspect]
     Active Substance: DOXYCYCLINE
     Indication: PRODUCT USED FOR UNKNOWN INDICATION
     Route: 065
  6. OXYCODONE [Concomitant]
     Active Substance: OXYCODONE
  7. CIPROFLOXACIN. [Suspect]
     Active Substance: CIPROFLOXACIN
     Indication: PRODUCT USED FOR UNKNOWN INDICATION
     Route: 065
  8. CREON [Suspect]
     Active Substance: PANCRELIPASE AMYLASE\PANCRELIPASE LIPASE\PANCRELIPASE PROTEASE
     Indication: CYSTIC FIBROSIS
     Dosage: 7 24000 UNITS CAPSULE THRICE A DAY BEFORE MEALS AND 3 24000 UNITS CAPSULES WITH SNACKS
     Route: 048
     Dates: start: 20140211
  9. AZTREONAM LYSINE [Suspect]
     Active Substance: AZTREONAM LYSINE
     Indication: CYSTIC FIBROSIS
     Dosage: ONGOING: YES
     Route: 050
     Dates: start: 20140624
  10. ADVAIR HFA [Concomitant]
     Active Substance: FLUTICASONE PROPIONATE\SALMETEROL XINAFOATE
  11. NALOXONE [Concomitant]
     Active Substance: NALOXONE
  12. BUPROPION. [Concomitant]
     Active Substance: BUPROPION

REACTIONS (3)
  - Cystic fibrosis [Not Recovered/Not Resolved]
  - Arthritis infective [Recovered/Resolved]
  - Drug hypersensitivity [Not Recovered/Not Resolved]

NARRATIVE: CASE EVENT DATE: 20190430
